FAERS Safety Report 9824974 (Version 1)
Quarter: 2014Q1

REPORT INFORMATION
  Report Type: Spontaneous
  Country: US (occurrence: US)
  Receive Date: 20140117
  Receipt Date: 20140117
  Transmission Date: 20141002
  Serious: Yes (Death, Hospitalization)
  Sender: FDA-Public Use
  Company Number: US-JNJFOC-20140107134

PATIENT
  Age: 52 Year
  Sex: Female

DRUGS (4)
  1. ACETAMINOPHEN [Suspect]
     Route: 065
  2. ACETAMINOPHEN [Suspect]
     Indication: SUICIDE ATTEMPT
     Route: 065
  3. INSULIN [Suspect]
     Indication: SUICIDE ATTEMPT
     Route: 065
  4. ZOLPIDEM [Suspect]
     Indication: SUICIDE ATTEMPT
     Route: 065

REACTIONS (1)
  - Toxicity to various agents [Fatal]
